FAERS Safety Report 15743390 (Version 1)
Quarter: 2018Q4

REPORT INFORMATION
  Report Type: Spontaneous
  Country: IN (occurrence: IN)
  Receive Date: 20181220
  Receipt Date: 20181220
  Transmission Date: 20190205
  Serious: Yes (Other)
  Sender: FDA-Public Use
  Company Number: IN-PFIZER INC-2018520703

PATIENT
  Age: 48 Year
  Sex: Female

DRUGS (1)
  1. AROMASIN [Suspect]
     Active Substance: EXEMESTANE
     Indication: BREAST CANCER FEMALE
     Dosage: 25 MG, UNK
     Route: 048
     Dates: start: 20181021

REACTIONS (5)
  - Pleural thickening [Unknown]
  - Pulmonary fibrosis [Unknown]
  - Neoplasm progression [Unknown]
  - Atelectasis [Unknown]
  - Degenerative bone disease [Unknown]
